FAERS Safety Report 20852556 (Version 1)
Quarter: 2022Q2

REPORT INFORMATION
  Report Type: Spontaneous
  Country: PS (occurrence: PS)
  Receive Date: 20220520
  Receipt Date: 20220520
  Transmission Date: 20220720
  Serious: Yes (Hospitalization, Other)
  Sender: FDA-Public Use
  Company Number: PS-NOVARTISPH-NVSC2022PS113564

PATIENT
  Age: 30 Year
  Sex: Female

DRUGS (2)
  1. CARBAMAZEPINE [Suspect]
     Active Substance: CARBAMAZEPINE
     Indication: Product used for unknown indication
     Dosage: 200 MG, UNKNOWN (62 CONTROL CONTROLLED RELEASE TABLETS)
     Route: 065
  2. MIDAZOLAM [Concomitant]
     Active Substance: MIDAZOLAM
     Indication: Product used for unknown indication
     Dosage: 10 MG, QH
     Route: 042

REACTIONS (9)
  - Coma [Recovered/Resolved]
  - Ophthalmoplegia [Recovered/Resolved]
  - Encephalopathy [Recovered/Resolved]
  - Anticonvulsant drug level increased [Unknown]
  - Toxicity to various agents [Unknown]
  - Myoclonic epilepsy [Recovered/Resolved]
  - Myoclonic dystonia [Recovered/Resolved]
  - Suicide attempt [Unknown]
  - Intentional overdose [Unknown]
